FAERS Safety Report 9166375 (Version 3)
Quarter: 2013Q2

REPORT INFORMATION
  Report Type: Spontaneous
  Country: PR (occurrence: PR)
  Receive Date: 20130315
  Receipt Date: 20130502
  Transmission Date: 20140414
  Serious: Yes (Hospitalization)
  Sender: FDA-Public Use
  Company Number: PR-ABBOTT-13P-131-1062304-00

PATIENT
  Age: 54 Year
  Sex: Female
  Weight: 113.5 kg

DRUGS (7)
  1. HUMIRA [Suspect]
     Indication: RHEUMATOID ARTHRITIS
     Route: 058
     Dates: start: 201208, end: 20130109
  2. NORVASC [Concomitant]
     Indication: HYPERTENSION
     Route: 048
  3. NORVASC [Concomitant]
     Route: 048
  4. PREDNISONE [Concomitant]
     Indication: GRANULOMATOSIS WITH POLYANGIITIS
     Route: 048
     Dates: start: 201303
  5. PREDNISONE [Concomitant]
  6. HAAZAR [Concomitant]
     Indication: HYPERTENSION
     Dosage: 1 - 100/25 TAB DAILY
     Route: 048
  7. METHOTREXATE SODIUM [Concomitant]
     Indication: RHEUMATOID ARTHRITIS

REACTIONS (8)
  - Granulomatosis with polyangiitis [Not Recovered/Not Resolved]
  - Blood glucose increased [Unknown]
  - Hypertension [Not Recovered/Not Resolved]
  - Dyspnoea [Recovered/Resolved]
  - Blood cholesterol increased [Unknown]
  - Blood albumin decreased [Unknown]
  - Asthenia [Unknown]
  - Haemoglobin decreased [Unknown]
